FAERS Safety Report 25876961 (Version 2)
Quarter: 2025Q4

REPORT INFORMATION
  Report Type: Spontaneous
  Country: US (occurrence: US)
  Receive Date: 20251003
  Receipt Date: 20251015
  Transmission Date: 20260117
  Serious: Yes (Other)
  Sender: NOVARTIS
  Company Number: US-002147023-NVSC2025US149857

PATIENT
  Age: 55 Year
  Sex: Female
  Weight: 77.098 kg

DRUGS (8)
  1. COSENTYX [Suspect]
     Active Substance: SECUKINUMAB
     Indication: Psoriatic arthropathy
     Dosage: UNK
     Route: 065
     Dates: start: 2017
  2. COSENTYX [Suspect]
     Active Substance: SECUKINUMAB
     Dosage: 150 MG ( WEEKS 0, 1, 2, 3, AND 4, THEN EVERY 4 WEEKS THEREAFTER)
     Route: 058
     Dates: start: 20250617, end: 20250902
  3. CLOBETASOL [Concomitant]
     Active Substance: CLOBETASOL
     Indication: Product used for unknown indication
     Dosage: UNK
     Route: 065
     Dates: start: 20250612
  4. TRIAMCINOLONE [Concomitant]
     Active Substance: TRIAMCINOLONE
     Indication: Product used for unknown indication
     Dosage: UNK
     Route: 065
     Dates: start: 20250612
  5. MAGNESIUM [Concomitant]
     Active Substance: MAGNESIUM
     Indication: Product used for unknown indication
     Dosage: UNK
     Route: 065
     Dates: start: 20250612
  6. CARVEDILOL [Concomitant]
     Active Substance: CARVEDILOL
     Indication: Product used for unknown indication
     Dosage: UNK
     Route: 065
     Dates: start: 20250612
  7. LISINOPRIL [Concomitant]
     Active Substance: LISINOPRIL
     Indication: Product used for unknown indication
     Dosage: UNK
     Route: 065
     Dates: start: 20250612
  8. HERBALS\TURMERIC [Concomitant]
     Active Substance: HERBALS\TURMERIC
     Indication: Product used for unknown indication
     Dosage: UNK
     Route: 065
     Dates: start: 20250612

REACTIONS (2)
  - Colitis [Recovered/Resolved]
  - Abdominal pain [Recovered/Resolved]

NARRATIVE: CASE EVENT DATE: 20250701
